APPROVED DRUG PRODUCT: ERYTHROMYCIN
Active Ingredient: ERYTHROMYCIN
Strength: 2%
Dosage Form/Route: SOLUTION;TOPICAL
Application: A062825 | Product #001
Applicant: PHARMOBEDIENT CONSULTING
Approved: Oct 23, 1987 | RLD: No | RS: No | Type: DISCN